FAERS Safety Report 5422552-5 (Version None)
Quarter: 2007Q3

REPORT INFORMATION
  Report Type: 
  Country: None (occurrence: None)
  Receive Date: 20070822
  Receipt Date: 20070816
  Transmission Date: 20080115
  Serious: Yes (Hospitalization)
  Sender: FDA-Public Use
  Company Number: FR-ELI_LILLY_AND_COMPANY-FR200708003620

PATIENT
  Age: 77 Year
  Sex: Female

DRUGS (4)
  1. FORTEO [Suspect]
     Indication: OSTEOPOROSIS
     Dosage: 20 UG, DAILY (1/D)
     Route: 058
     Dates: start: 20061024, end: 20070730
  2. FORTEO [Suspect]
     Dosage: 20 UG, DAILY (1/D)
     Route: 058
     Dates: start: 20070807
  3. PREVISCAN [Concomitant]
     Route: 048
     Dates: end: 20070730
  4. PREVISCAN [Concomitant]
     Dosage: 0.25 D/F, DAILY (1/D)
     Route: 048
     Dates: start: 20070810

REACTIONS (4)
  - FALL [None]
  - PAIN IN EXTREMITY [None]
  - PHLEBITIS [None]
  - WOUND [None]
